FAERS Safety Report 6669791-3 (Version None)
Quarter: 2010Q2

REPORT INFORMATION
  Report Type: 
  Country: None (occurrence: None)
  Receive Date: 20100406
  Receipt Date: 20100401
  Transmission Date: 20101027
  Serious: Yes (Death, Life-Threatening, Hospitalization)
  Sender: FDA-Public Use
  Company Number: JP-SANOFI-AVENTIS-2010SA010281

PATIENT
  Age: 74 Year
  Sex: Male
  Weight: 69 kg

DRUGS (10)
  1. OXALIPLATIN [Suspect]
     Indication: COLON CANCER
     Route: 041
     Dates: start: 20100201, end: 20100201
  2. XELODA [Suspect]
     Indication: COLON CANCER
     Route: 048
     Dates: start: 20100201
  3. WARFARIN POTASSIUM [Suspect]
     Indication: ATRIAL FIBRILLATION
     Route: 048
     Dates: start: 20061020, end: 20100215
  4. BEVACIZUMAB [Concomitant]
     Indication: COLON CANCER
     Route: 041
     Dates: start: 20100201, end: 20100201
  5. KYTRIL [Concomitant]
     Indication: PREMEDICATION
     Route: 041
     Dates: start: 20100201, end: 20100201
  6. DEXAMETHASONE SODIUM PHOSPHATE [Concomitant]
     Indication: PREMEDICATION
     Route: 041
     Dates: start: 20100201, end: 20100201
  7. VASOLAN [Concomitant]
     Indication: ARRHYTHMIA
     Route: 048
     Dates: start: 19970228, end: 20100217
  8. LASIX [Concomitant]
     Indication: HYPERTENSION
     Route: 048
     Dates: start: 20020115, end: 20100217
  9. CARVEDILOL [Concomitant]
     Indication: HYPERTENSION
     Route: 048
     Dates: start: 20020807, end: 20100217
  10. CASODEX [Concomitant]
     Indication: PROSTATE CANCER
     Route: 048
     Dates: start: 20061010, end: 20100217

REACTIONS (6)
  - COAGULOPATHY [None]
  - DECREASED APPETITE [None]
  - ENTEROCOLITIS [None]
  - NEUTROPHIL COUNT DECREASED [None]
  - PLATELET COUNT DECREASED [None]
  - WHITE BLOOD CELL COUNT DECREASED [None]
